FAERS Safety Report 7937891-3 (Version None)
Quarter: 2011Q4

REPORT INFORMATION
  Report Type: 
  Country: None (occurrence: None)
  Receive Date: 20111123
  Receipt Date: 20111118
  Transmission Date: 20120403
  Serious: Yes (Other)
  Sender: FDA-Public Use
  Company Number: BR-PFIZER INC-2011261990

PATIENT
  Age: 55 Year
  Sex: Female
  Weight: 53.5 kg

DRUGS (7)
  1. VARENICLINE TARTRATE [Suspect]
     Dosage: UNK
  2. VARENICLINE TARTRATE [Suspect]
     Dosage: 1 MG, 2X/DAY
  3. CLONAZEPAM [Concomitant]
     Indication: ANXIETY
     Dosage: 10 GTT, DAILY
  4. VARENICLINE TARTRATE [Suspect]
     Indication: TOBACCO USER
     Dosage: UNK
     Route: 048
     Dates: start: 20090101
  5. VARENICLINE TARTRATE [Suspect]
     Dosage: 0.5 MG, 2X/DAY
  6. VARENICLINE TARTRATE [Suspect]
     Dosage: 0.5 MG, 1X/DAY
  7. ALPRAZOLAM [Concomitant]
     Indication: ANXIETY
     Dosage: 1 MG, 1X/DAY

REACTIONS (5)
  - ANXIETY [None]
  - NAUSEA [None]
  - DEPRESSION [None]
  - APATHY [None]
  - NERVOUSNESS [None]
